FAERS Safety Report 6313439-4 (Version None)
Quarter: 2009Q3

REPORT INFORMATION
  Report Type: 
  Country: None (occurrence: None)
  Receive Date: 20090818
  Receipt Date: 20090813
  Transmission Date: 20100115
  Serious: No
  Sender: FDA-Public Use
  Company Number: JP-JNJFOC-20090804551

PATIENT

DRUGS (2)
  1. DUROTEP MT [Suspect]
     Dosage: 50UG/HR AND 6.25 UG/HR
     Route: 062
  2. DUROTEP MT [Suspect]
     Indication: DRUG USE FOR UNKNOWN INDICATION
     Dosage: 50 UG/HR AND 12.5 UG/HR
     Route: 062

REACTIONS (4)
  - AGITATION [None]
  - ANXIETY [None]
  - INSOMNIA [None]
  - WRONG TECHNIQUE IN DRUG USAGE PROCESS [None]
